FAERS Safety Report 24700762 (Version 1)
Quarter: 2024Q4

REPORT INFORMATION
  Report Type: Spontaneous
  Country: US (occurrence: None)
  Receive Date: 20241204
  Receipt Date: 20241204
  Transmission Date: 20250115
  Serious: Yes (Other)
  Sender: Public
  Company Number: None

PATIENT
  Age: 71 Year
  Sex: Female
  Weight: 66.23 kg

DRUGS (16)
  1. DUPIXENT [Suspect]
     Active Substance: DUPILUMAB
     Indication: Dermatitis atopic
     Dosage: OTHER FREQUENCY : EVERY 14 DAYS;?
     Route: 058
     Dates: start: 20240418
  2. CICLOPIROX [Concomitant]
     Active Substance: CICLOPIROX
     Dates: start: 20231205
  3. CLINDAMYCIN [Concomitant]
     Active Substance: CLINDAMYCIN
  4. CLOBETASOL [Concomitant]
     Active Substance: CLOBETASOL
  5. CRISABOROLE [Concomitant]
     Active Substance: CRISABOROLE
  6. DOXYCYCLINE [Concomitant]
     Active Substance: DOXYCYCLINE
  7. ESOMEPRAZOLE [Concomitant]
     Active Substance: ESOMEPRAZOLE
  8. FAMOTIDINE [Concomitant]
     Active Substance: FAMOTIDINE
  9. HYDROXYZINE [Concomitant]
     Active Substance: HYDROXYZINE HYDROCHLORIDE
  10. MUPIROCIN [Concomitant]
     Active Substance: MUPIROCIN
  11. NITROFURANTOIN [Concomitant]
     Active Substance: NITROFURANTOIN
  12. OLMESARTAN [Concomitant]
     Active Substance: OLMESARTAN
  13. PREDNISONE [Concomitant]
     Active Substance: PREDNISONE
  14. SEMAGLUTIDE [Concomitant]
     Active Substance: SEMAGLUTIDE
  15. SERTRALINE [Concomitant]
     Active Substance: SERTRALINE HYDROCHLORIDE
  16. TRIAMCINOLONE [Concomitant]
     Active Substance: TRIAMCINOLONE

REACTIONS (1)
  - Squamous cell carcinoma [None]

NARRATIVE: CASE EVENT DATE: 20241202
